FAERS Safety Report 19430121 (Version 2)
Quarter: 2021Q2

REPORT INFORMATION
  Report Type: Spontaneous
  Country: IT (occurrence: IT)
  Receive Date: 20210617
  Receipt Date: 20210624
  Transmission Date: 20210717
  Serious: Yes (Other)
  Sender: FDA-Public Use
  Company Number: IT-ROCHE-2849314

PATIENT
  Age: 31 Year
  Sex: Female

DRUGS (1)
  1. TRUXIMA [Suspect]
     Active Substance: RITUXIMAB-ABBS
     Indication: SYSTEMIC SCLERODERMA
     Route: 042
     Dates: start: 20190923, end: 20190923

REACTIONS (5)
  - Oropharyngeal pain [Recovering/Resolving]
  - Spinal pain [Recovering/Resolving]
  - Paraesthesia [Recovering/Resolving]
  - Joint lock [Recovering/Resolving]
  - Presyncope [Recovering/Resolving]

NARRATIVE: CASE EVENT DATE: 20190923
